FAERS Safety Report 5728453-7 (Version None)
Quarter: 2008Q2

REPORT INFORMATION
  Report Type: 
  Country: None (occurrence: None)
  Receive Date: 20080506
  Receipt Date: 20080506
  Transmission Date: 20081010
  Serious: Yes (Other)
  Sender: FDA-Public Use
  Company Number: None

PATIENT
  Age: 6 Year
  Sex: Male
  Weight: 20.9 kg

DRUGS (2)
  1. HEPARIN LOCK FLUSH PRESERVATIVE FREE [Suspect]
     Indication: CENTRAL VENOUS CATHETERISATION
     Dosage: 500 UNITS =  5ML 3 X WEEKLY + UD IV
     Route: 042
     Dates: start: 20080324, end: 20080411
  2. HEPARIN LOCK FLUSH PRESERVATIVE FREE [Suspect]

REACTIONS (14)
  - ABDOMINAL PAIN UPPER [None]
  - ABNORMAL BEHAVIOUR [None]
  - CATHETER RELATED INFECTION [None]
  - CATHETER SITE HAEMORRHAGE [None]
  - DIZZINESS [None]
  - DYSPNOEA [None]
  - FATIGUE [None]
  - FEELING ABNORMAL [None]
  - NAUSEA [None]
  - PALLOR [None]
  - PHARMACEUTICAL PRODUCT COMPLAINT [None]
  - PYREXIA [None]
  - VIRAL INFECTION [None]
  - VOMITING [None]
